FAERS Safety Report 6930320-8 (Version None)
Quarter: 2010Q3

REPORT INFORMATION
  Report Type: 
  Country: None (occurrence: None)
  Receive Date: 20100818
  Receipt Date: 20100810
  Transmission Date: 20110219
  Serious: Yes (Other)
  Sender: FDA-Public Use
  Company Number: US-ROCHE-701751

PATIENT
  Sex: Female
  Weight: 58.1 kg

DRUGS (1)
  1. CAPECITABINE [Suspect]
     Indication: BREAST CANCER
     Dosage: DOSAGE: 3 PILLS AM PM
     Route: 048
     Dates: start: 20100226, end: 20100429

REACTIONS (2)
  - PLEURAL EFFUSION [None]
  - PULMONARY OEDEMA [None]
